FAERS Safety Report 7803731-6 (Version None)
Quarter: 2011Q4

REPORT INFORMATION
  Report Type: 
  Country: None (occurrence: None)
  Receive Date: 20111010
  Receipt Date: 20111007
  Transmission Date: 20120403
  Serious: No
  Sender: FDA-Public Use
  Company Number: US-PFIZER INC-2011240388

PATIENT
  Sex: Female
  Weight: 74.376 kg

DRUGS (2)
  1. LIPITOR [Concomitant]
     Indication: BLOOD CHOLESTEROL INCREASED
     Dosage: 20 MG,DAILY
  2. NICOTROL [Suspect]
     Indication: SMOKING CESSATION THERAPY
     Dosage: UNK, 4X/DAY
     Route: 045
     Dates: start: 20111006, end: 20111007

REACTIONS (3)
  - NASAL DISCOMFORT [None]
  - HEADACHE [None]
  - LACRIMATION INCREASED [None]
